FAERS Safety Report 9952301 (Version 1)
Quarter: 2014Q1

REPORT INFORMATION
  Report Type: Report from Study
  Country: US (occurrence: US)
  Receive Date: 20140304
  Receipt Date: 20140304
  Transmission Date: 20141002
  Serious: No
  Sender: FDA-Public Use
  Company Number: US-ABBVIE-13P-163-1074515-00

PATIENT
  Age: 20 Year
  Sex: Female

DRUGS (4)
  1. HUMIRA [Suspect]
     Indication: CROHN^S DISEASE
     Dates: start: 20130109
  2. MERCAPTOPURINE [Concomitant]
     Indication: CROHN^S DISEASE
  3. CLARITIN [Concomitant]
     Indication: HYPERSENSITIVITY
     Dosage: 10 MG DAILY
  4. TYLENOL [Concomitant]
     Indication: PAIN
     Dosage: AS NEEDED

REACTIONS (5)
  - Psychiatric symptom [Not Recovered/Not Resolved]
  - Injection site pruritus [Recovered/Resolved]
  - Injection site erythema [Recovered/Resolved]
  - Injection site swelling [Not Recovered/Not Resolved]
  - Injection site pruritus [Not Recovered/Not Resolved]
